FAERS Safety Report 17067264 (Version 2)
Quarter: 2020Q3

REPORT INFORMATION
  Report Type: Report from Study
  Country: US (occurrence: US)
  Receive Date: 20191122
  Receipt Date: 20200706
  Transmission Date: 20201102
  Serious: Yes (Other)
  Sender: FDA-Public Use
  Company Number: US-ACTELION-A-NJ2018-165420

PATIENT
  Age: 58 Year
  Sex: Female
  Weight: 66.67 kg

DRUGS (8)
  1. MUCINEX [Concomitant]
     Active Substance: GUAIFENESIN
     Indication: PULMONARY CONGESTION
  2. VELETRI [Suspect]
     Active Substance: EPOPROSTENOL
     Indication: PULMONARY ARTERIAL HYPERTENSION
     Dosage: 73.24 NG/KG, PER MIN
     Route: 042
  3. VELETRI [Suspect]
     Active Substance: EPOPROSTENOL
     Dosage: 57 NG/KG, PER MIN
     Route: 042
  4. VELETRI [Suspect]
     Active Substance: EPOPROSTENOL
     Dosage: 73.24 NG/KG, PER MIN
     Route: 042
  5. OPSUMIT [Suspect]
     Active Substance: MACITENTAN
     Dosage: 10 MG, QD
     Route: 048
     Dates: start: 20180611
  6. OPSUMIT [Suspect]
     Active Substance: MACITENTAN
     Indication: PULMONARY ARTERIAL HYPERTENSION
     Dosage: 10 MG, QD
     Route: 048
     Dates: start: 20151104
  7. VELETRI [Suspect]
     Active Substance: EPOPROSTENOL
     Dosage: UNK
     Route: 042
  8. SILDENAFIL CITRATE. [Concomitant]
     Active Substance: SILDENAFIL CITRATE

REACTIONS (19)
  - Non-cardiac chest pain [Unknown]
  - Vomiting [Unknown]
  - Catheter site infection [Recovering/Resolving]
  - Pulmonary congestion [Unknown]
  - Catheter site related reaction [Unknown]
  - Pain in jaw [Unknown]
  - Nausea [Unknown]
  - Oedema peripheral [Unknown]
  - Gastroenteritis viral [Unknown]
  - Otitis media [Unknown]
  - Rib fracture [Unknown]
  - Gastric disorder [Unknown]
  - Constipation [Unknown]
  - Cough [Unknown]
  - Weight decreased [Unknown]
  - Diarrhoea [Unknown]
  - Flatulence [Unknown]
  - Upper respiratory tract infection [Unknown]
  - Conjunctivitis [Unknown]

NARRATIVE: CASE EVENT DATE: 201806
